FAERS Safety Report 25314436 (Version 1)
Quarter: 2025Q2

REPORT INFORMATION
  Report Type: Spontaneous
  Country: TN (occurrence: TN)
  Receive Date: 20250514
  Receipt Date: 20250514
  Transmission Date: 20250717
  Serious: Yes (Life-Threatening, Hospitalization)
  Sender: SANDOZ
  Company Number: TN-MLMSERVICE-20250422-PI484464-00218-2

PATIENT
  Age: 8 Year
  Sex: Male

DRUGS (25)
  1. ADRIACIN [Suspect]
     Active Substance: DOXORUBICIN HYDROCHLORIDE
     Indication: Burkitt^s lymphoma stage IV
     Route: 065
  2. ADRIACIN [Suspect]
     Active Substance: DOXORUBICIN HYDROCHLORIDE
     Indication: Metastases to bone
  3. ADRIACIN [Suspect]
     Active Substance: DOXORUBICIN HYDROCHLORIDE
     Indication: Metastases to eye
  4. ADRIACIN [Suspect]
     Active Substance: DOXORUBICIN HYDROCHLORIDE
     Indication: Metastases to mouth
  5. ADRIACIN [Suspect]
     Active Substance: DOXORUBICIN HYDROCHLORIDE
     Indication: Nasopharyngeal cancer stage IV
  6. CYCLOPHOSPHAMIDE [Suspect]
     Active Substance: CYCLOPHOSPHAMIDE
     Indication: Burkitt^s lymphoma stage IV
     Route: 065
  7. CYCLOPHOSPHAMIDE [Suspect]
     Active Substance: CYCLOPHOSPHAMIDE
     Indication: Metastases to bone
  8. CYCLOPHOSPHAMIDE [Suspect]
     Active Substance: CYCLOPHOSPHAMIDE
     Indication: Metastases to eye
  9. CYCLOPHOSPHAMIDE [Suspect]
     Active Substance: CYCLOPHOSPHAMIDE
     Indication: Metastases to mouth
  10. CYCLOPHOSPHAMIDE [Suspect]
     Active Substance: CYCLOPHOSPHAMIDE
     Indication: Nasopharyngeal cancer stage IV
  11. METHOTREXATE [Suspect]
     Active Substance: METHOTREXATE
     Indication: Burkitt^s lymphoma stage IV
     Route: 065
  12. METHOTREXATE [Suspect]
     Active Substance: METHOTREXATE
     Indication: Metastases to bone
  13. METHOTREXATE [Suspect]
     Active Substance: METHOTREXATE
     Indication: Metastases to eye
  14. METHOTREXATE [Suspect]
     Active Substance: METHOTREXATE
     Indication: Metastases to mouth
  15. METHOTREXATE [Suspect]
     Active Substance: METHOTREXATE
     Indication: Nasopharyngeal cancer stage IV
  16. PREDNISOLONE [Suspect]
     Active Substance: PREDNISOLONE
     Indication: Burkitt^s lymphoma stage IV
     Route: 065
  17. PREDNISOLONE [Suspect]
     Active Substance: PREDNISOLONE
     Indication: Metastases to bone
  18. PREDNISOLONE [Suspect]
     Active Substance: PREDNISOLONE
     Indication: Metastases to eye
  19. PREDNISOLONE [Suspect]
     Active Substance: PREDNISOLONE
     Indication: Metastases to mouth
  20. PREDNISOLONE [Suspect]
     Active Substance: PREDNISOLONE
     Indication: Nasopharyngeal cancer stage IV
  21. VINCRISTINE [Suspect]
     Active Substance: VINCRISTINE
     Indication: Burkitt^s lymphoma stage IV
     Route: 065
  22. VINCRISTINE [Suspect]
     Active Substance: VINCRISTINE
     Indication: Metastases to bone
  23. VINCRISTINE [Suspect]
     Active Substance: VINCRISTINE
     Indication: Metastases to eye
  24. VINCRISTINE [Suspect]
     Active Substance: VINCRISTINE
     Indication: Metastases to mouth
  25. VINCRISTINE [Suspect]
     Active Substance: VINCRISTINE
     Indication: Nasopharyngeal cancer stage IV

REACTIONS (2)
  - Posterior reversible encephalopathy syndrome [Unknown]
  - Coma [Recovered/Resolved]
